FAERS Safety Report 6963779-0 (Version None)
Quarter: 2010Q3

REPORT INFORMATION
  Report Type: 
  Country: None (occurrence: None)
  Receive Date: 20100902
  Receipt Date: 20100823
  Transmission Date: 20110219
  Serious: Yes (Hospitalization, Disabling)
  Sender: FDA-Public Use
  Company Number: US-WATSON-2010-11511

PATIENT
  Age: 72 Year
  Sex: Male

DRUGS (3)
  1. PREDNISONE (WATSON LABORATORIES) [Suspect]
     Indication: RHEUMATOID ARTHRITIS
     Dosage: 7.5 MG, UNKNOWN
  2. INFLIXIMAB [Suspect]
     Indication: RHEUMATOID ARTHRITIS
     Dosage: 4 MG/KG EVERY 2 MONTHS
  3. METHOTREXATE [Suspect]
     Indication: RHEUMATOID ARTHRITIS
     Dosage: 17.5 MG, 1/WEEK
     Route: 048

REACTIONS (1)
  - PROGRESSIVE MULTIFOCAL LEUKOENCEPHALOPATHY [None]
